FAERS Safety Report 8416867-6 (Version None)
Quarter: 2012Q2

REPORT INFORMATION
  Report Type: 
  Country: None (occurrence: None)
  Receive Date: 20120606
  Receipt Date: 20120605
  Transmission Date: 20120825
  Serious: Yes (Death)
  Sender: FDA-Public Use
  Company Number: US-PFIZER INC-2009US-20879

PATIENT
  Age: 52 Year
  Sex: Male

DRUGS (8)
  1. METFORMIN HYDROCHLORIDE [Suspect]
     Dosage: UNK
     Route: 048
  2. VERAPAMIL HCL [Suspect]
     Dosage: UNK
     Route: 048
  3. HYDROGEN PEROXIDE SOLUTION [Suspect]
     Dosage: UNK
     Route: 065
  4. OLANZAPINE [Suspect]
     Dosage: UNK
     Route: 065
  5. TRIAMTERENE AND HYDROCHLOROTHIAZIDE [Suspect]
     Dosage: UNK
     Route: 048
  6. MEVACOR [Suspect]
     Dosage: UNK
     Route: 065
  7. GLIPIZIDE [Suspect]
     Dosage: UNK
     Route: 048
  8. LITHIUM CARBONATE [Suspect]
     Dosage: UNK
     Route: 048

REACTIONS (1)
  - COMPLETED SUICIDE [None]
